FAERS Safety Report 23049049 (Version 1)
Quarter: 2023Q4

REPORT INFORMATION
  Report Type: Other
  Country: TR (occurrence: None)
  Receive Date: 20231010
  Receipt Date: 20231010
  Transmission Date: 20240109
  Serious: Yes (Other)
  Sender: FDA-Public Use
  Company Number: TR-ROCHE-3433214

PATIENT

DRUGS (10)
  1. TOCILIZUMAB [Suspect]
     Active Substance: TOCILIZUMAB
     Indication: COVID-19
     Route: 065
  2. HYDROXYCHLOROQUINE [Suspect]
     Active Substance: HYDROXYCHLOROQUINE
     Indication: COVID-19
     Route: 065
  3. LOPINAVIR\RITONAVIR [Suspect]
     Active Substance: LOPINAVIR\RITONAVIR
     Indication: COVID-19
     Route: 065
  4. AZITHROMYCIN [Suspect]
     Active Substance: AZITHROMYCIN
     Indication: COVID-19
     Route: 065
  5. FAVIPIRAVIR [Suspect]
     Active Substance: FAVIPIRAVIR
     Indication: COVID-19
     Route: 065
  6. REMDESIVIR [Suspect]
     Active Substance: REMDESIVIR
     Indication: COVID-19
     Route: 065
  7. COLCHICINE [Suspect]
     Active Substance: COLCHICINE
     Indication: COVID-19
     Route: 065
  8. HEPARIN [Suspect]
     Active Substance: HEPARIN SODIUM
     Indication: COVID-19
     Route: 065
  9. ACETYLCYSTEINE [Suspect]
     Active Substance: ACETYLCYSTEINE
     Indication: COVID-19
     Route: 065
  10. VITAMIN C [Suspect]
     Active Substance: ASCORBIC ACID
     Indication: COVID-19
     Route: 065

REACTIONS (14)
  - Off label use [Unknown]
  - Abortion threatened [Unknown]
  - Abortion spontaneous [Unknown]
  - Premature delivery [Unknown]
  - Preterm premature rupture of membranes [Unknown]
  - Pre-eclampsia [Unknown]
  - Eclampsia [Unknown]
  - Deep vein thrombosis [Unknown]
  - Postpartum haemorrhage [Unknown]
  - Lymphopenia [Unknown]
  - Cerebral venous sinus thrombosis [Unknown]
  - Premature separation of placenta [Unknown]
  - Foetal malpresentation [Unknown]
  - Maternal exposure during pregnancy [Unknown]
